FAERS Safety Report 7854773-6 (Version None)
Quarter: 2011Q4

REPORT INFORMATION
  Report Type: 
  Country: None (occurrence: None)
  Receive Date: 20111026
  Receipt Date: 20111020
  Transmission Date: 20120403
  Serious: Yes (Hospitalization, Other)
  Sender: FDA-Public Use
  Company Number: DE-BAYER-2011-095330

PATIENT
  Age: 39 Year
  Sex: Female
  Weight: 62 kg

DRUGS (8)
  1. P.A.S. [Concomitant]
     Dosage: UNK
     Dates: start: 20110719
  2. MEROPENEM [Concomitant]
     Dosage: 1 G, TID
     Dates: start: 20110902
  3. ZYVOX [Concomitant]
     Dosage: UNK
     Dates: start: 20110709, end: 20110810
  4. LAMPRENE [Concomitant]
     Dosage: 100 MG, QD
     Dates: start: 20110907
  5. REKAWAN [Concomitant]
     Indication: BLOOD POTASSIUM DECREASED
  6. ZYVOX [Concomitant]
     Dosage: 600 MG, UNK
     Dates: start: 20111007
  7. COMBACTAM [Concomitant]
     Dosage: 1 G, TID
  8. AVELOX [Suspect]
     Indication: TUBERCULOSIS
     Dosage: 800 MG, UNK
     Dates: start: 20110902, end: 20111005

REACTIONS (1)
  - DEAFNESS [None]
